FAERS Safety Report 5294607-X (Version None)
Quarter: 2007Q2

REPORT INFORMATION
  Report Type: 
  Country: None (occurrence: None)
  Receive Date: 20070412
  Receipt Date: 20070409
  Transmission Date: 20071010
  Serious: Yes (Other)
  Sender: FDA-Public Use
  Company Number: US-GLAXOSMITHKLINE-A0646276A

PATIENT
  Age: 71 Year
  Sex: Male

DRUGS (4)
  1. AVODART [Suspect]
     Indication: BENIGN PROSTATIC HYPERPLASIA
     Dosage: 1CAP PER DAY
     Route: 048
     Dates: start: 20050801
  2. TERAZOSIN HCL [Concomitant]
  3. SYNTHROID [Concomitant]
     Indication: HYPERTHYROIDISM
  4. BACITRACIN [Concomitant]

REACTIONS (4)
  - HYPERTHYROIDISM [None]
  - PRURITUS [None]
  - RASH [None]
  - SKIN EXFOLIATION [None]
